FAERS Safety Report 12084269 (Version 1)
Quarter: 2016Q1

REPORT INFORMATION
  Report Type: Spontaneous
  Country: US (occurrence: US)
  Receive Date: 20160217
  Receipt Date: 20160217
  Transmission Date: 20160526
  Serious: Yes (Other)
  Sender: FDA-Public Use
  Company Number: US-OTSUKA-2016_002025

PATIENT

DRUGS (2)
  1. FLUDARABINE [Suspect]
     Active Substance: FLUDARABINE PHOSPHATE
     Indication: STEM CELL TRANSPLANT
     Dosage: 30.0 MG/M2, ON DAYS-6 TO -2
     Route: 042
  2. BUSULFEX [Suspect]
     Active Substance: BUSULFAN
     Indication: STEM CELL TRANSPLANT
     Dosage: 08 MG/KG, ONE TIME ON DAY -2, FOUR TIMES ON DAY -3,THREE TIMES ON DAY -4(EACH DOSE WITH 6HR APART)
     Route: 042

REACTIONS (1)
  - Cystitis haemorrhagic [Unknown]
